FAERS Safety Report 7032171-5 (Version None)
Quarter: 2010Q4

REPORT INFORMATION
  Report Type: 
  Country: None (occurrence: None)
  Receive Date: 20101007
  Receipt Date: 20100112
  Transmission Date: 20110411
  Serious: Yes (Hospitalization)
  Sender: FDA-Public Use
  Company Number: US-BRISTOL-MYERS SQUIBB COMPANY-14939862

PATIENT
  Age: 75 Year
  Sex: Male
  Weight: 81 kg

DRUGS (11)
  1. CETUXIMAB [Suspect]
     Indication: TRANSITIONAL CELL CARCINOMA
     Dosage: FORM INJ
     Route: 042
     Dates: start: 20090928, end: 20100106
  2. CISPLATIN [Suspect]
     Indication: TRANSITIONAL CELL CARCINOMA
     Dosage: FORM INJ
     Route: 042
     Dates: start: 20090928, end: 20091223
  3. GEMCITABINE [Suspect]
     Indication: TRANSITIONAL CELL CARCINOMA
     Dosage: FORM INJ
     Route: 042
     Dates: start: 20090928, end: 20100106
  4. GLIPIZIDE [Concomitant]
  5. AMLODIPINE [Concomitant]
  6. OXYCONTIN [Concomitant]
  7. ONDANSETRON [Concomitant]
  8. LORAZEPAM [Concomitant]
  9. DEXAMETHASONE [Concomitant]
  10. GABAPENTIN [Concomitant]
  11. ANCEF [Concomitant]
     Indication: PHLEBITIS
     Dates: start: 20100109, end: 20100109

REACTIONS (1)
  - DEEP VEIN THROMBOSIS [None]
